FAERS Safety Report 6078225-1 (Version None)
Quarter: 2009Q1

REPORT INFORMATION
  Report Type: 
  Country: None (occurrence: None)
  Receive Date: 20090213
  Receipt Date: 20090203
  Transmission Date: 20090719
  Serious: Yes (Death)
  Sender: FDA-Public Use
  Company Number: US-ELI_LILLY_AND_COMPANY-US200902001146

PATIENT
  Age: 25 Year
  Sex: Female

DRUGS (9)
  1. ZYPREXA [Suspect]
     Dosage: 10 MG, UNK
  2. RISPERDAL [Concomitant]
  3. LEXAPRO [Concomitant]
  4. AMBIEN [Concomitant]
  5. TEMAZEPAM [Concomitant]
  6. NAPROXEN [Concomitant]
  7. METHOCARBAMOL [Concomitant]
  8. ETHANOL [Concomitant]
  9. DEXTROMETHORPHAN [Concomitant]

REACTIONS (1)
  - DRUG TOXICITY [None]
